FAERS Safety Report 8946765 (Version 3)
Quarter: 2013Q1

REPORT INFORMATION
  Report Type: Spontaneous
  Country: US (occurrence: US)
  Receive Date: 20121205
  Receipt Date: 20130329
  Transmission Date: 20140127
  Serious: Yes (Hospitalization)
  Sender: FDA-Public Use
  Company Number: US-009507513-1212USA000494

PATIENT
  Age: 61 None
  Sex: Female

DRUGS (3)
  1. FOSAMAX [Suspect]
     Dosage: 70 MG, QW
     Route: 048
     Dates: start: 1995, end: 20120707
  2. PREDNISONE [Concomitant]
  3. METHOTREXATE [Concomitant]

REACTIONS (4)
  - Femur fracture [Not Recovered/Not Resolved]
  - Foot fracture [Unknown]
  - Upper limb fracture [Unknown]
  - Surgery [Unknown]
